FAERS Safety Report 10363031 (Version 2)
Quarter: 2014Q3

REPORT INFORMATION
  Report Type: Spontaneous
  Country: AU (occurrence: AU)
  Receive Date: 20140805
  Receipt Date: 20140819
  Transmission Date: 20150326
  Serious: Yes (Disabling)
  Sender: FDA-Public Use
  Company Number: AU-HORIZON-PRE-0098-2014

PATIENT
  Sex: Female

DRUGS (2)
  1. PREDNISONE. [Suspect]
     Active Substance: PREDNISONE
     Indication: PRODUCT USED FOR UNKNOWN INDICATION
  2. BETAFERON [Suspect]
     Active Substance: INTERFERON BETA-1B
     Indication: MULTIPLE SCLEROSIS
     Dosage: 250 MCG/ML, ALTERNATE DAYS
     Route: 058
     Dates: start: 20040101

REACTIONS (7)
  - Self-medication [None]
  - Faecal incontinence [Not Recovered/Not Resolved]
  - Hypothyroidism [None]
  - Injection site pain [Recovered/Resolved]
  - Motor dysfunction [Unknown]
  - Urinary incontinence [Not Recovered/Not Resolved]
  - Paraesthesia [Unknown]

NARRATIVE: CASE EVENT DATE: 2013
